FAERS Safety Report 17515547 (Version 2)
Quarter: 2020Q1

REPORT INFORMATION
  Report Type: Spontaneous
  Country: DK (occurrence: DK)
  Receive Date: 20200309
  Receipt Date: 20200311
  Transmission Date: 20200409
  Serious: Yes (Disabling)
  Sender: FDA-Public Use
  Company Number: DK-AMGEN-DNKSP2020036874

PATIENT
  Age: 50 Year
  Sex: Female

DRUGS (3)
  1. AIMOVIG [Suspect]
     Active Substance: ERENUMAB-AOOE
     Indication: MIGRAINE PROPHYLAXIS
     Dosage: 140 MG, ONCE EVERY 4 WEEKS, STRENGTH: 140 MG
     Route: 058
     Dates: start: 20190710, end: 20190813
  2. OXAPAX [Concomitant]
     Active Substance: OXAZEPAM
     Indication: SEDATIVE THERAPY
     Dosage: 15 MG, ONCE A DAY, STRENGTH: 15 MG
     Route: 048
     Dates: start: 20160701
  3. DULOXETINE. [Concomitant]
     Active Substance: DULOXETINE
     Indication: DEPRESSION
     Dosage: 60 MG, TWICE DAILY, STRENGTH: 60 MG
     Route: 048
     Dates: start: 20181201

REACTIONS (6)
  - Dyspnoea [Recovered/Resolved]
  - Constipation [Recovered/Resolved]
  - Increased appetite [Not Recovered/Not Resolved]
  - Migraine [Unknown]
  - Fatigue [Not Recovered/Not Resolved]
  - Hypertension [Recovering/Resolving]

NARRATIVE: CASE EVENT DATE: 20190711
